FAERS Safety Report 10233343 (Version 1)
Quarter: 2014Q2

REPORT INFORMATION
  Report Type: Spontaneous
  Country: BR (occurrence: BR)
  Receive Date: 20140612
  Receipt Date: 20140612
  Transmission Date: 20141212
  Serious: Yes (Other)
  Sender: FDA-Public Use
  Company Number: BR-PFIZER INC-2014158302

PATIENT
  Age: 75 Year
  Sex: Female
  Weight: 69 kg

DRUGS (4)
  1. CITALOR [Suspect]
     Indication: BLOOD CHOLESTEROL INCREASED
     Dosage: 40 MG, DAILY
     Route: 048
     Dates: start: 20120104
  2. DIAMICRON MR [Concomitant]
     Indication: DIABETES MELLITUS
     Dosage: 2 TABLETS OF STRENGTH 100 MG (200 MG), DAILY
     Route: 048
     Dates: start: 2010
  3. DONAREN [Concomitant]
     Indication: DEPRESSION
     Dosage: 1 TABLET, DAILY
     Dates: start: 2009
  4. RIVOTRIL [Concomitant]
     Indication: DEPRESSION
     Dosage: 2 MG, DAILY
     Dates: start: 2009

REACTIONS (2)
  - Urinary incontinence [Not Recovered/Not Resolved]
  - Body height decreased [Unknown]
